FAERS Safety Report 9275156 (Version 1)
Quarter: 2013Q2

REPORT INFORMATION
  Report Type: Spontaneous
  Country: US (occurrence: US)
  Receive Date: 20130507
  Receipt Date: 20130507
  Transmission Date: 20140414
  Serious: No
  Sender: FDA-Public Use
  Company Number: US-JNJFOC-20130500140

PATIENT
  Age: 29 Year
  Sex: Female
  Weight: 61.24 kg

DRUGS (3)
  1. DURAGESIC [Suspect]
     Indication: MULTIPLE SCLEROSIS
     Route: 062
     Dates: end: 2012
  2. DURAGESIC [Suspect]
     Indication: MULTIPLE SCLEROSIS
     Route: 062
     Dates: start: 201304
  3. DILAUDID [Concomitant]
     Indication: PAIN
     Dosage: UP TO 6 AS NEEDED
     Route: 048

REACTIONS (2)
  - Wrong technique in drug usage process [Not Recovered/Not Resolved]
  - Product quality issue [Unknown]
